FAERS Safety Report 20611310 (Version 1)
Quarter: 2022Q1

REPORT INFORMATION
  Report Type: Spontaneous
  Country: US (occurrence: None)
  Receive Date: 20220317
  Receipt Date: 20220317
  Transmission Date: 20220424
  Serious: Yes (unspecified)
  Sender: FDA-Public Use
  Company Number: None

PATIENT
  Age: 67 Year
  Sex: Male
  Weight: 64.8 kg

DRUGS (10)
  1. CABENUVA [Suspect]
     Active Substance: CABOTEGRAVIR\RILPIVIRINE
     Indication: HIV infection
     Dosage: OTHER FREQUENCY : 1 X PER MONTH;?
     Route: 030
     Dates: start: 20220311
  2. VITAMINS [Concomitant]
     Active Substance: VITAMINS
  3. VITAMIN C [Concomitant]
     Active Substance: ASCORBIC ACID
  4. VITAMIN B12 [Concomitant]
     Active Substance: CYANOCOBALAMIN
  5. ZINC [Concomitant]
     Active Substance: ZINC
  6. ALPHA LIPOIC ACID [Concomitant]
     Active Substance: .ALPHA.-LIPOIC ACID
  7. COENZYME Q10 [Concomitant]
     Active Substance: DIETARY SUPPLEMENT\UBIDECARENONE
  8. AMINO ACIDS [Concomitant]
     Active Substance: AMINO ACIDS
  9. QUERCITIN [Concomitant]
  10. HERBALS\SAW PALMETTO [Concomitant]
     Active Substance: HERBALS\SAW PALMETTO

REACTIONS (10)
  - Injection site pain [None]
  - Muscle disorder [None]
  - Gait inability [None]
  - Nausea [None]
  - Disorientation [None]
  - Dysstasia [None]
  - Abdominal pain upper [None]
  - Confusional state [None]
  - Hyperventilation [None]
  - Speech disorder [None]

NARRATIVE: CASE EVENT DATE: 20220313
